FAERS Safety Report 8945230 (Version 1)
Quarter: 2012Q4

REPORT INFORMATION
  Report Type: 
  Country: US (occurrence: US)
  Receive Date: 20121205
  Receipt Date: 20121205
  Transmission Date: 20130627
  Serious: Yes (Other)
  Sender: FDA-Public Use
  Company Number: US-ASTRAZENECA-2012SE89693

PATIENT
  Age: 87 Year
  Sex: Male
  Weight: 65.8 kg

DRUGS (5)
  1. ATENOLOL [Suspect]
     Indication: ATRIAL FIBRILLATION
     Dosage: GENERIC
     Route: 048
  2. CRESTOR [Suspect]
     Indication: BLOOD CHOLESTEROL INCREASED
     Route: 048
     Dates: end: 20121123
  3. ATROVAN INHALER [Concomitant]
     Indication: BRONCHIECTASIS
     Dosage: OID
     Route: 055
  4. RITUXAN [Concomitant]
     Indication: ANAEMIA HAEMOLYTIC AUTOIMMUNE
     Dosage: AS REQUIRED
  5. ROTATING ANTIBIOTICS [Concomitant]
     Indication: BRONCHIECTASIS
     Route: 050

REACTIONS (8)
  - Anaemia haemolytic autoimmune [Unknown]
  - Spinal fracture [Unknown]
  - Dysstasia [Unknown]
  - Off label use [Unknown]
  - Intentional drug misuse [Unknown]
  - Atrial fibrillation [Unknown]
  - Muscle spasms [Recovering/Resolving]
  - Muscular weakness [Recovering/Resolving]
